FAERS Safety Report 5648170-1 (Version None)
Quarter: 2008Q1

REPORT INFORMATION
  Report Type: 
  Country: None (occurrence: None)
  Receive Date: 20080229
  Receipt Date: 20080220
  Transmission Date: 20080703
  Serious: Yes (Death, Hospitalization)
  Sender: FDA-Public Use
  Company Number: 2008-01494

PATIENT
  Age: 41 Year
  Sex: Male

DRUGS (2)
  1. FIORINAL [Suspect]
     Indication: COMPLETED SUICIDE
     Dosage: 200 TABLETS OF 325MG ASA, ORAL
     Route: 048
     Dates: start: 20070101, end: 20070101
  2. ALCOHOL (ETHANOL) [Concomitant]

REACTIONS (6)
  - AGONAL RHYTHM [None]
  - COMPLETED SUICIDE [None]
  - GRAND MAL CONVULSION [None]
  - KUSSMAUL RESPIRATION [None]
  - THERAPEUTIC AGENT TOXICITY [None]
  - VENTRICULAR FIBRILLATION [None]
